FAERS Safety Report 22165523 (Version 2)
Quarter: 2023Q2

REPORT INFORMATION
  Report Type: Spontaneous
  Country: GB (occurrence: GB)
  Receive Date: 20230403
  Receipt Date: 20230427
  Transmission Date: 20230721
  Serious: Yes (Hospitalization, Other)
  Sender: FDA-Public Use
  Company Number: GB-GLAXOSMITHKLINE-GB2023EME038762

PATIENT

DRUGS (1)
  1. DOSTARLIMAB [Suspect]
     Active Substance: DOSTARLIMAB
     Indication: Endometrial cancer
     Dosage: 500 MG
     Route: 042
     Dates: start: 20221027, end: 20221229

REACTIONS (5)
  - Immune-mediated enterocolitis [Recovering/Resolving]
  - Abdominal discomfort [Recovering/Resolving]
  - Hypokalaemia [Recovering/Resolving]
  - Diverticulum [Unknown]
  - Colitis [Unknown]

NARRATIVE: CASE EVENT DATE: 20230122
